FAERS Safety Report 17985673 (Version 1)
Quarter: 2020Q3

REPORT INFORMATION
  Report Type: Report from Study
  Country: FR (occurrence: FR)
  Receive Date: 20200706
  Receipt Date: 20200706
  Transmission Date: 20201103
  Serious: Yes (Hospitalization)
  Sender: FDA-Public Use
  Company Number: FR-JNJFOC-20200637428

PATIENT
  Age: 71 Year
  Sex: Male

DRUGS (11)
  1. STELARA [Suspect]
     Active Substance: USTEKINUMAB
     Route: 058
     Dates: start: 20190129
  2. INEGY [Concomitant]
     Active Substance: EZETIMIBE\SIMVASTATIN
  3. ADENURIC [Concomitant]
     Active Substance: FEBUXOSTAT
  4. DAIVOBET [Concomitant]
     Active Substance: BETAMETHASONE DIPROPIONATE\CALCIPOTRIENE
  5. STELARA [Suspect]
     Active Substance: USTEKINUMAB
     Route: 058
     Dates: start: 20180517
  6. METFORMINE [Concomitant]
     Active Substance: METFORMIN HYDROCHLORIDE
  7. STELARA [Suspect]
     Active Substance: USTEKINUMAB
     Indication: PSORIASIS
     Route: 058
     Dates: start: 20180419
  8. AMIODARONE [Concomitant]
     Active Substance: AMIODARONE
  9. LEVOTHYROX [Concomitant]
     Active Substance: LEVOTHYROXINE
  10. XARELTO [Concomitant]
     Active Substance: RIVAROXABAN
  11. VALSARTAN. [Concomitant]
     Active Substance: VALSARTAN

REACTIONS (1)
  - COVID-19 [Recovered/Resolved]

NARRATIVE: CASE EVENT DATE: 20200325
